FAERS Safety Report 5352226-0 (Version None)
Quarter: 2007Q2

REPORT INFORMATION
  Report Type: 
  Country: None (occurrence: None)
  Receive Date: 20070611
  Receipt Date: 20070601
  Transmission Date: 20071010
  Serious: Yes (Other)
  Sender: FDA-Public Use
  Company Number: US-JNJFOC-20070601098

PATIENT
  Sex: Female
  Weight: 90.27 kg

DRUGS (5)
  1. DURAGESIC-100 [Suspect]
     Indication: PAIN
     Dosage: 2 X 75 UG/HR PATCHES
     Route: 062
  2. PROZAC [Suspect]
     Indication: ANXIETY
     Route: 048
  3. ESTRACE [Concomitant]
     Indication: HORMONE REPLACEMENT THERAPY
     Route: 048
  4. MICRONASE [Concomitant]
     Indication: DIABETES MELLITUS
     Route: 048
  5. OXYCONTIN [Concomitant]
     Indication: BREAKTHROUGH PAIN
     Route: 048

REACTIONS (8)
  - ANXIETY [None]
  - BLOOD CHOLESTEROL INCREASED [None]
  - DIZZINESS [None]
  - HYPERTENSION [None]
  - INSOMNIA [None]
  - OEDEMA [None]
  - PAIN IN EXTREMITY [None]
  - ROAD TRAFFIC ACCIDENT [None]
